FAERS Safety Report 9215235 (Version 1)
Quarter: 2013Q2

REPORT INFORMATION
  Report Type: Spontaneous
  Country: FR (occurrence: FR)
  Receive Date: 20130405
  Receipt Date: 20130405
  Transmission Date: 20140414
  Serious: Yes (Hospitalization, Other)
  Sender: FDA-Public Use
  Company Number: FR-BAXTER-2013BAX011792

PATIENT
  Age: 18 Year
  Sex: Female
  Weight: 43 kg

DRUGS (9)
  1. ENDOXAN 2000 MG, LYOPHILISAT POUR SOLUTION INJECTABLE [Suspect]
     Indication: ACUTE LYMPHOCYTIC LEUKAEMIA
     Route: 042
     Dates: start: 20120622, end: 20120706
  2. KIDROLASE [Suspect]
     Indication: ACUTE LYMPHOCYTIC LEUKAEMIA
     Route: 042
     Dates: start: 20120629, end: 20120719
  3. ARACYTINE [Suspect]
     Indication: ACUTE LYMPHOCYTIC LEUKAEMIA
     Route: 037
     Dates: start: 20120626, end: 20120701
  4. METHOTREXATE [Suspect]
     Indication: ACUTE LYMPHOCYTIC LEUKAEMIA
     Route: 037
     Dates: start: 20120626, end: 20120701
  5. ONCOVIN [Suspect]
     Indication: ACUTE LYMPHOCYTIC LEUKAEMIA
     Route: 042
     Dates: start: 20120706, end: 20120713
  6. ONCOVIN [Suspect]
     Route: 042
     Dates: start: 20120622
  7. CERUBIDINE [Suspect]
     Indication: ACUTE LYMPHOCYTIC LEUKAEMIA
     Route: 042
     Dates: start: 20120622, end: 20120707
  8. LUTENYL [Suspect]
     Indication: ORAL CONTRACEPTION
     Route: 048
     Dates: end: 20120812
  9. PERFALGAN [Concomitant]
     Indication: POST LUMBAR PUNCTURE SYNDROME
     Route: 065

REACTIONS (2)
  - Pulmonary embolism [Recovering/Resolving]
  - Cerebral venous thrombosis [Recovering/Resolving]
